FAERS Safety Report 13355163 (Version 1)
Quarter: 2017Q1

REPORT INFORMATION
  Report Type: Spontaneous
  Country: US (occurrence: US)
  Receive Date: 20170321
  Receipt Date: 20170321
  Transmission Date: 20170429
  Serious: No
  Sender: FDA-Public Use
  Company Number: US-BAUSCH-BL-2016-027498

PATIENT
  Age: 69 Year
  Sex: Male
  Weight: 96.25 kg

DRUGS (13)
  1. XOLAIR [Concomitant]
     Active Substance: OMALIZUMAB
     Indication: ASTHMA
  2. TERAZOSIN 5 MG [Concomitant]
     Indication: PRODUCT USED FOR UNKNOWN INDICATION
     Route: 048
  3. TIOTROPIUM 18 MG [Concomitant]
     Indication: ASTHMA
  4. PANTOPRAZOLE 40 MG [Concomitant]
     Active Substance: PANTOPRAZOLE SODIUM
     Indication: GASTRIC DISORDER
     Route: 048
  5. ASPIRIN 81 MG [Concomitant]
     Active Substance: ASPIRIN
     Indication: PRODUCT USED FOR UNKNOWN INDICATION
     Route: 048
  6. SILDENAFIL CITRATE 100 MG [Concomitant]
     Active Substance: SILDENAFIL CITRATE
     Indication: ERECTILE DYSFUNCTION
     Dosage: AS NEEDED
     Route: 048
  7. PREDNISONE 5 MG [Concomitant]
     Active Substance: PREDNISONE
     Indication: ASTHMA
     Dosage: 1 DAILY, VARIES
     Route: 048
  8. SULFACETAMIDE WASH [Concomitant]
     Indication: ACNE
     Dosage: AS NEEDED
     Route: 061
  9. TRETINOIN ONE PERCENT SOLUTION [Concomitant]
     Indication: ACNE
     Dosage: EVERY OTHER DAY
     Route: 061
  10. TRETINOIN ONE PERCENT CREAM [Concomitant]
     Indication: ACNE
     Dosage: EVERY OTHER DAY
     Route: 061
  11. TRETINOIN. [Suspect]
     Active Substance: TRETINOIN
     Indication: ACNE
     Route: 061
     Dates: start: 1987
  12. TRETINOIN. [Suspect]
     Active Substance: TRETINOIN
     Indication: ALOPECIA
  13. TESTOSTERONE 200 MG [Concomitant]
     Indication: HORMONE REPLACEMENT THERAPY
     Dosage: EVERY 2 WEEKS

REACTIONS (3)
  - Expired product administered [Unknown]
  - Product use issue [Unknown]
  - Dry skin [Not Recovered/Not Resolved]
